FAERS Safety Report 16379681 (Version 1)
Quarter: 2019Q2

REPORT INFORMATION
  Report Type: Spontaneous
  Country: US (occurrence: US)
  Receive Date: 20190531
  Receipt Date: 20190531
  Transmission Date: 20190711
  Serious: No
  Sender: FDA-Public Use
  Company Number: US-GLAXOSMITHKLINE-US2019096945

PATIENT
  Age: 53 Year
  Sex: Female

DRUGS (2)
  1. MEMBERS MARK NICOTINE [Suspect]
     Active Substance: NICOTINE
     Dosage: I HAD TO USE IT TWICE
     Dates: start: 20190527
  2. MEMBERS MARK NICOTINE [Suspect]
     Active Substance: NICOTINE
     Indication: SMOKING CESSATION THERAPY
     Dosage: I HAD TO USE IT TWICE
     Dates: start: 20190527

REACTIONS (2)
  - Product complaint [Unknown]
  - Wrong technique in product usage process [Unknown]

NARRATIVE: CASE EVENT DATE: 20190527
